FAERS Safety Report 25953170 (Version 1)
Quarter: 2025Q4

REPORT INFORMATION
  Report Type: Spontaneous
  Country: CA (occurrence: CA)
  Receive Date: 20251023
  Receipt Date: 20251023
  Transmission Date: 20260118
  Serious: Yes (Life-Threatening, Hospitalization, Other)
  Sender: HIKMA
  Company Number: CA-HIKMA PHARMACEUTICALS USA INC.-CA-H14001-24-06157

PATIENT
  Age: 13 Month
  Sex: Male
  Weight: 10 kg

DRUGS (5)
  1. CYTARABINE [Suspect]
     Active Substance: CYTARABINE
     Indication: Product used for unknown indication
     Dosage: UNKNOWN
     Route: 065
  2. DAUNORUBICIN [Suspect]
     Active Substance: DAUNORUBICIN
     Indication: Product used for unknown indication
     Dosage: UNKNOWN
     Route: 065
  3. HYDROCORTISONE [Suspect]
     Active Substance: HYDROCORTISONE
     Indication: Product used for unknown indication
     Dosage: UNKNOWN
     Route: 065
  4. METHOTREXATE SODIUM [Suspect]
     Active Substance: METHOTREXATE SODIUM
     Indication: Product used for unknown indication
     Dosage: UNKNOWN
     Route: 065
  5. MYLOTARG [Suspect]
     Active Substance: GEMTUZUMAB OZOGAMICIN
     Indication: Product used for unknown indication
     Dosage: UNKNOWN
     Route: 042

REACTIONS (1)
  - Febrile neutropenia [Recovering/Resolving]
